FAERS Safety Report 17459957 (Version 1)
Quarter: 2020Q1

REPORT INFORMATION
  Report Type: Spontaneous
  Country: US (occurrence: US)
  Receive Date: 20200213
  Receipt Date: 20200213
  Transmission Date: 20200409
  Serious: No
  Sender: FDA-Public Use
  Company Number: None

PATIENT
  Sex: Female

DRUGS (1)
  1. AUBAGIO [Suspect]
     Active Substance: TERIFLUNOMIDE
     Indication: MULTIPLE SCLEROSIS
     Route: 048
     Dates: start: 20191201, end: 20200213

REACTIONS (5)
  - Hypoaesthesia [None]
  - Paraesthesia [None]
  - Muscle tightness [None]
  - Therapy cessation [None]
  - Muscle spasms [None]
